FAERS Safety Report 7811134-3 (Version None)
Quarter: 2011Q4

REPORT INFORMATION
  Report Type: 
  Country: None (occurrence: None)
  Receive Date: 20111013
  Receipt Date: 20111005
  Transmission Date: 20120403
  Serious: Yes (Hospitalization, Disabling, Other)
  Sender: FDA-Public Use
  Company Number: US-ASTELLAS-2011US006501

PATIENT
  Sex: Male
  Weight: 76 kg

DRUGS (2)
  1. MYFORTIC [Concomitant]
     Indication: PRODUCT USED FOR UNKNOWN INDICATION
     Dosage: 720 MG, BID
     Route: 048
  2. PROGRAF [Suspect]
     Indication: LIVER TRANSPLANT
     Dosage: 1 MG, UID/QD
     Route: 048

REACTIONS (4)
  - CARDIAC PACEMAKER INSERTION [None]
  - DIABETES MELLITUS [None]
  - IMMOBILE [None]
  - DEVICE RELATED INFECTION [None]
